FAERS Safety Report 6369280-X (Version None)
Quarter: 2009Q3

REPORT INFORMATION
  Report Type: 
  Country: None (occurrence: None)
  Receive Date: 20090922
  Receipt Date: 20090921
  Transmission Date: 20100115
  Serious: Yes (Hospitalization, Other)
  Sender: FDA-Public Use
  Company Number: US-AMGEN-US326414

PATIENT
  Sex: Female
  Weight: 64.5 kg

DRUGS (16)
  1. NPLATE [Suspect]
     Indication: IDIOPATHIC THROMBOCYTOPENIC PURPURA
     Route: 065
     Dates: start: 20080908, end: 20081114
  2. NPLATE [Suspect]
     Dates: start: 20090519, end: 20090526
  3. NPLATE [Suspect]
     Dates: start: 20090601, end: 20090601
  4. NPLATE [Suspect]
     Dates: start: 20090604, end: 20090622
  5. NPLATE [Suspect]
     Dates: start: 20090629, end: 20090706
  6. NPLATE [Suspect]
     Dates: start: 20090713, end: 20090713
  7. NPLATE [Suspect]
     Dates: start: 20090720
  8. METFORMIN HCL [Concomitant]
  9. LASIX [Concomitant]
  10. SIMVASTATIN [Concomitant]
  11. AMBIEN [Concomitant]
  12. ACTONEL [Concomitant]
  13. CALCIUM [Concomitant]
  14. MULTI-VITAMINS [Concomitant]
  15. TRAMADOL HCL [Concomitant]
  16. VICODIN [Concomitant]

REACTIONS (3)
  - DRUG INEFFECTIVE [None]
  - PLATELET COUNT DECREASED [None]
  - THERAPEUTIC RESPONSE DECREASED [None]
